FAERS Safety Report 6023893-3 (Version None)
Quarter: 2008Q4

REPORT INFORMATION
  Report Type: 
  Country: None (occurrence: None)
  Receive Date: 20081230
  Receipt Date: 20081219
  Transmission Date: 20090506
  Serious: Yes (Life-Threatening, Hospitalization, Other)
  Sender: FDA-Public Use
  Company Number: GB-PFIZER INC-2008157575

PATIENT

DRUGS (5)
  1. PHENYTOIN AND PHENYTOIN SODIUM [Suspect]
     Indication: CONVULSION
     Dosage: 275 MG, 1X/DAY
     Route: 048
     Dates: start: 20080819, end: 20080907
  2. CEFTRIAXONE [Suspect]
     Indication: BRAIN ABSCESS
     Dosage: 4 G, 1X/DAY
     Route: 042
     Dates: start: 20080822, end: 20080907
  3. CLARITHROMYCIN [Concomitant]
     Dosage: UNK
  4. METRONIDAZOLE [Concomitant]
     Dosage: UNK
  5. ONDANSETRON HYDROCHLORIDE [Concomitant]
     Dosage: UNK

REACTIONS (1)
  - NEUTROPENIA [None]
